FAERS Safety Report 5604168-0 (Version None)
Quarter: 2008Q1

REPORT INFORMATION
  Report Type: 
  Country: None (occurrence: None)
  Receive Date: 20080123
  Receipt Date: 20080123
  Transmission Date: 20080703
  Serious: Yes (Hospitalization)
  Sender: FDA-Public Use
  Company Number: None

PATIENT
  Age: 85 Year
  Sex: Male
  Weight: 48.99 kg

DRUGS (2)
  1. WARFARIN SODIUM [Suspect]
     Indication: ARTERIAL BYPASS OPERATION
     Dosage: 3MG EVERY DAY PO
     Route: 048
     Dates: start: 20070405, end: 20080117
  2. WARFARIN SODIUM [Suspect]
     Indication: THROMBECTOMY
     Dosage: 3MG EVERY DAY PO
     Route: 048
     Dates: start: 20070405, end: 20080117

REACTIONS (5)
  - DECREASED APPETITE [None]
  - DRUG TOXICITY [None]
  - INTERNATIONAL NORMALISED RATIO ABNORMAL [None]
  - PNEUMONIA [None]
  - URINARY TRACT INFECTION [None]
